FAERS Safety Report 5522939-6 (Version None)
Quarter: 2007Q4

REPORT INFORMATION
  Report Type: 
  Country: None (occurrence: None)
  Receive Date: 20071121
  Receipt Date: 20071109
  Transmission Date: 20080405
  Serious: Yes (Other)
  Sender: FDA-Public Use
  Company Number: HQWYE424426JUL04

PATIENT
  Sex: Female

DRUGS (3)
  1. PREMPRO [Suspect]
  2. MEDROXYPROGESTERONE ACETATE [Suspect]
  3. PREMARIN [Suspect]

REACTIONS (6)
  - DEEP VEIN THROMBOSIS [None]
  - JOINT SPRAIN [None]
  - PNEUMONIA [None]
  - PULMONARY EMBOLISM [None]
  - SCLERITIS [None]
  - SYSTEMIC LUPUS ERYTHEMATOSUS [None]
